FAERS Safety Report 16204827 (Version 2)
Quarter: 2019Q2

REPORT INFORMATION
  Report Type: Spontaneous
  Country: PT (occurrence: PT)
  Receive Date: 20190416
  Receipt Date: 20190522
  Transmission Date: 20190711
  Serious: Yes (Other)
  Sender: FDA-Public Use
  Company Number: PT-ABBVIE-19P-130-2745243-00

PATIENT
  Age: 32 Year
  Sex: Female

DRUGS (3)
  1. HUMIRA [Suspect]
     Active Substance: ADALIMUMAB
     Indication: CHORIORETINITIS
  2. PREDNISOLONE. [Concomitant]
     Active Substance: PREDNISOLONE
     Indication: PRODUCT USED FOR UNKNOWN INDICATION
  3. HUMIRA [Suspect]
     Active Substance: ADALIMUMAB
     Indication: BEHCET^S SYNDROME
     Route: 058
     Dates: start: 201312

REACTIONS (9)
  - Tonsillar ulcer [Unknown]
  - Odynophagia [Unknown]
  - Lymphadenopathy [Unknown]
  - Pyrexia [Unknown]
  - Disseminated tuberculosis [Unknown]
  - Tonsillar hypertrophy [Unknown]
  - Tuberculous laryngitis [Unknown]
  - Secretion discharge [Unknown]
  - Off label use [Unknown]
